FAERS Safety Report 5531838-5 (Version None)
Quarter: 2007Q4

REPORT INFORMATION
  Report Type: 
  Country: None (occurrence: None)
  Receive Date: 20071127
  Receipt Date: 20071127
  Transmission Date: 20080405
  Serious: Yes (Hospitalization)
  Sender: FDA-Public Use
  Company Number: None

PATIENT
  Sex: Female
  Weight: 57.1532 kg

DRUGS (2)
  1. ALIMTA [Suspect]
     Indication: METASTATIC NEOPLASM
     Dosage: 500 MG/M2   D 1,8 Q 21 D   IV
     Route: 042
     Dates: start: 20070301, end: 20070615
  2. ERLOTINIB [Suspect]
     Indication: METASTATIC NEOPLASM
     Dosage: 200 MG   D 2-16 Q 21 D   P.O.
     Route: 048
     Dates: start: 20070302, end: 20070811

REACTIONS (6)
  - ABDOMINAL DISTENSION [None]
  - ABDOMINAL PAIN [None]
  - CONSTIPATION [None]
  - DISEASE PROGRESSION [None]
  - FLATULENCE [None]
  - URINARY TRACT INFECTION [None]
